FAERS Safety Report 7637668-2 (Version None)
Quarter: 2011Q3

REPORT INFORMATION
  Report Type: 
  Country: None (occurrence: None)
  Receive Date: 20110726
  Receipt Date: 20110509
  Transmission Date: 20111222
  Serious: No
  Sender: FDA-Public Use
  Company Number: US-AMGEN-USASP2011024268

PATIENT
  Age: 56 Year
  Sex: Male
  Weight: 70.295 kg

DRUGS (9)
  1. MYFORTIC [Concomitant]
     Dosage: 360 MG, UNK
     Route: 048
     Dates: start: 20101111
  2. PROCRIT [Suspect]
     Indication: RED BLOOD CELL COUNT DECREASED
     Dosage: 20000 IU, QWK
     Route: 058
     Dates: start: 20110201
  3. DAPSONE [Concomitant]
     Dosage: 100 MG, QD
     Route: 048
     Dates: start: 20101111
  4. ASPIRIN [Concomitant]
     Dosage: 81 MG, UNK
     Route: 048
     Dates: start: 20101111
  5. OMEPRAZOLE [Concomitant]
     Dosage: 40 MG, QD
     Dates: start: 20101111
  6. OSCAL D                            /00944201/ [Concomitant]
     Dosage: 500 MG, QD
     Dates: start: 20101111
  7. VALCYTE [Concomitant]
     Dosage: 450 MG, QD
     Route: 048
  8. METOPROLOL TARTRATE [Concomitant]
     Dosage: 25 MG, QD
     Route: 048
  9. PROGRAF [Concomitant]
     Dosage: 4 MG, UNK
     Route: 048
     Dates: start: 20101111

REACTIONS (2)
  - WHITE BLOOD CELL COUNT DECREASED [None]
  - DRUG DOSE OMISSION [None]
